FAERS Safety Report 18904856 (Version 1)
Quarter: 2021Q1

REPORT INFORMATION
  Report Type: Spontaneous
  Country: US (occurrence: US)
  Receive Date: 20210217
  Receipt Date: 20210217
  Transmission Date: 20210420
  Serious: Yes (Other)
  Sender: FDA-Public Use
  Company Number: None

PATIENT
  Age: 47 Year
  Sex: Female

DRUGS (7)
  1. PRAMIPEXOLE 0.125MG [Concomitant]
     Active Substance: PRAMIPEXOLE
     Dates: start: 20210127
  2. OMEPRAZOLE 20MG [Concomitant]
     Active Substance: OMEPRAZOLE
     Dates: start: 20210212
  3. SERTRALINE [Suspect]
     Active Substance: SERTRALINE HYDROCHLORIDE
     Route: 048
     Dates: start: 20210212, end: 20210215
  4. TOPIRAMATE. [Concomitant]
     Active Substance: TOPIRAMATE
     Dates: start: 20210212
  5. TAMOXIFEN 20MG [Concomitant]
     Active Substance: TAMOXIFEN
     Dates: start: 20210125
  6. PHENTERMINE 37.5MG [Concomitant]
     Active Substance: PHENTERMINE
     Dates: start: 20210212
  7. CYCLOBENZAPRINE. [Concomitant]
     Active Substance: CYCLOBENZAPRINE
     Dates: start: 20201117

REACTIONS (3)
  - Hypoaesthesia [None]
  - Paraesthesia [None]
  - Epistaxis [None]

NARRATIVE: CASE EVENT DATE: 20210215
